FAERS Safety Report 20781473 (Version 3)
Quarter: 2022Q2

REPORT INFORMATION
  Report Type: Spontaneous
  Country: US (occurrence: US)
  Receive Date: 20220504
  Receipt Date: 20220608
  Transmission Date: 20220720
  Serious: Yes (Disabling, Other)
  Sender: FDA-Public Use
  Company Number: US-SANOFI-01078280

PATIENT
  Sex: Female

DRUGS (2)
  1. LOVENOX [Suspect]
     Active Substance: ENOXAPARIN SODIUM
     Indication: Thrombosis prophylaxis
     Dosage: UNK
     Dates: start: 202202
  2. MORPHINE [Concomitant]
     Active Substance: MORPHINE
     Dosage: UNK

REACTIONS (35)
  - Cerebrovascular accident [Unknown]
  - Necrosis [Unknown]
  - Impaired work ability [Unknown]
  - Cellulitis gangrenous [Unknown]
  - Skin necrosis [Unknown]
  - Haemorrhage [Unknown]
  - Skin disorder [Unknown]
  - Injection site ulcer [Unknown]
  - Subcutaneous abscess [Unknown]
  - Abdominal distension [Unknown]
  - Abdominal pain [Unknown]
  - Abscess [Unknown]
  - Condition aggravated [Unknown]
  - Confusional state [Unknown]
  - Somnolence [Unknown]
  - Chest discomfort [Unknown]
  - Blood pressure increased [Unknown]
  - Dizziness [Unknown]
  - Nausea [Unknown]
  - Migraine [Unknown]
  - Neurological symptom [Unknown]
  - Eye disorder [Unknown]
  - Pain [Unknown]
  - Skin reaction [Unknown]
  - Lipase increased [Unknown]
  - Dysphemia [Unknown]
  - Memory impairment [Unknown]
  - Tremor [Unknown]
  - Paraesthesia [Unknown]
  - Lymphatic disorder [Unknown]
  - Blood pressure decreased [Unknown]
  - Thinking abnormal [Unknown]
  - Vomiting [Unknown]
  - Drainage [Unknown]
  - Headache [Unknown]

NARRATIVE: CASE EVENT DATE: 20220101
